FAERS Safety Report 18510593 (Version 1)
Quarter: 2020Q4

REPORT INFORMATION
  Report Type: Spontaneous
  Country: US (occurrence: US)
  Receive Date: 20201117
  Receipt Date: 20201117
  Transmission Date: 20210114
  Serious: Yes (Hospitalization)
  Sender: FDA-Public Use
  Company Number: US-FRESENIUS MEDICAL CARE RENAL THERAPIES GROUP-FMC-2011-001334

PATIENT
  Age: 49 Year
  Sex: Male

DRUGS (19)
  1. DELFLEX WITH DEXTROSE 1.5% LOW MAGNESIUM LOW CALCIUM [Suspect]
     Active Substance: CALCIUM CHLORIDE\DEXTROSE\MAGNESIUM CHLORIDE\SODIUM CHLORIDE\SODIUM LACTATE
     Indication: END STAGE RENAL DISEASE
     Route: 033
     Dates: start: 20181220
  2. ASPIRIN. [Concomitant]
     Active Substance: ASPIRIN
  3. DELFLEX WITH DEXTROSE 2.5% LOW MAGNESIUM LOW CALCIUM [Suspect]
     Active Substance: CALCIUM CHLORIDE\DEXTROSE\MAGNESIUM CHLORIDE\SODIUM CHLORIDE\SODIUM LACTATE
     Indication: END STAGE RENAL DISEASE
     Route: 033
     Dates: start: 20181220
  4. ZETIA [Concomitant]
     Active Substance: EZETIMIBE
  5. NITROGLYCERINE [Concomitant]
     Active Substance: NITROGLYCERIN
  6. NEURONTIN [Suspect]
     Active Substance: GABAPENTIN
  7. CALCITRIOL. [Concomitant]
     Active Substance: CALCITRIOL
  8. LASIX [Concomitant]
     Active Substance: FUROSEMIDE
  9. AURYXIA [Concomitant]
     Active Substance: TETRAFERRIC TRICITRATE DECAHYDRATE
  10. GENTAMICIN. [Concomitant]
     Active Substance: GENTAMICIN
  11. LISINOPRIL. [Concomitant]
     Active Substance: LISINOPRIL
  12. RENA-VITE [Concomitant]
     Active Substance: ASCORBIC ACID\BIOTIN\CALCIUM PANTOTHENATE\CYANOCOBALAMIN\FOLIC ACID\NIACINAMIDE\PYRIDOXINE HYDROCHLORIDE\RIBOFLAVIN\THIAMINE MONONITRATE
  13. ATORVASTATIN [Concomitant]
     Active Substance: ATORVASTATIN
  14. TRAMADOL. [Concomitant]
     Active Substance: TRAMADOL
  15. PLAVIX [Concomitant]
     Active Substance: CLOPIDOGREL BISULFATE
  16. NOVOLOG [Concomitant]
     Active Substance: INSULIN ASPART
  17. DELFLEX WITH DEXTROSE 4.25% LOW MAGNESIUM LOW CALCIUM [Suspect]
     Active Substance: CALCIUM CHLORIDE\DEXTROSE\MAGNESIUM CHLORIDE\SODIUM CHLORIDE\SODIUM LACTATE
     Indication: END STAGE RENAL DISEASE
     Route: 033
     Dates: start: 20181220
  18. LIDOCAINE. [Concomitant]
     Active Substance: LIDOCAINE
  19. METOPROLOL. [Concomitant]
     Active Substance: METOPROLOL

REACTIONS (2)
  - Treatment noncompliance [Unknown]
  - Toxicity to various agents [Unknown]

NARRATIVE: CASE EVENT DATE: 20201028
